FAERS Safety Report 13412615 (Version 3)
Quarter: 2023Q1

REPORT INFORMATION
  Report Type: Spontaneous
  Country: US (occurrence: US)
  Receive Date: 20170406
  Receipt Date: 20230202
  Transmission Date: 20230418
  Serious: No
  Sender: FDA-Public Use
  Company Number: US-JNJFOC-20170308436

PATIENT
  Age: 13 Year
  Sex: Male

DRUGS (6)
  1. RISPERDAL [Suspect]
     Active Substance: RISPERIDONE
     Indication: Product used for unknown indication
     Route: 048
  2. RISPERDAL CONSTA [Suspect]
     Active Substance: RISPERIDONE
     Indication: Product used for unknown indication
     Route: 048
  3. RISPERDAL CONSTA [Suspect]
     Active Substance: RISPERIDONE
  4. RISPERDAL CONSTA [Suspect]
     Active Substance: RISPERIDONE
  5. RISPERDAL CONSTA [Suspect]
     Active Substance: RISPERIDONE
  6. INVEGA [Suspect]
     Active Substance: PALIPERIDONE
     Indication: Product used for unknown indication
     Route: 048

REACTIONS (3)
  - Blood prolactin increased [Unknown]
  - Lipids increased [Unknown]
  - Somnolence [Unknown]

NARRATIVE: CASE EVENT DATE: 20060101
